FAERS Safety Report 11075006 (Version 1)
Quarter: 2015Q2

REPORT INFORMATION
  Report Type: Spontaneous
  Country: US (occurrence: None)
  Receive Date: 20150428
  Receipt Date: 20150428
  Transmission Date: 20150821
  Serious: No
  Sender: FDA-Public Use
  Company Number: None

PATIENT
  Age: 66 Year
  Sex: Male

DRUGS (1)
  1. XELJANZ [Suspect]
     Active Substance: TOFACITINIB CITRATE
     Dosage: 5 MG, BID, PO
     Route: 048
     Dates: start: 20150129

REACTIONS (2)
  - Condition aggravated [None]
  - Osteoporosis [None]

NARRATIVE: CASE EVENT DATE: 20150401
